FAERS Safety Report 20869825 (Version 1)
Quarter: 2022Q2

REPORT INFORMATION
  Report Type: Report from Study
  Country: US (occurrence: US)
  Receive Date: 20220525
  Receipt Date: 20220525
  Transmission Date: 20220721
  Serious: Yes (Other)
  Sender: FDA-Public Use
  Company Number: US-TAKEDA-2021TUS048519

PATIENT
  Age: 37 Year
  Sex: Female
  Weight: 82 kg

DRUGS (33)
  1. HUMAN IMMUNOGLOBULIN G [Suspect]
     Active Substance: HUMAN IMMUNOGLOBULIN G
     Indication: Asthma
     Dosage: 10 GRAM, 1/WEEK
     Route: 058
     Dates: start: 20210725
  2. HUMAN IMMUNOGLOBULIN G [Suspect]
     Active Substance: HUMAN IMMUNOGLOBULIN G
     Indication: Pulmonary eosinophilia
  3. HUMAN IMMUNOGLOBULIN G [Suspect]
     Active Substance: HUMAN IMMUNOGLOBULIN G
     Indication: Immunodeficiency common variable
  4. GAMMAGARD LIQUID [Suspect]
     Active Substance: HUMAN IMMUNOGLOBULIN G
     Indication: Asthma
     Dosage: 30 GRAM, Q4WEEKS
     Route: 042
     Dates: start: 20220104
  5. GAMMAGARD LIQUID [Suspect]
     Active Substance: HUMAN IMMUNOGLOBULIN G
     Indication: Immunodeficiency common variable
  6. ACETAMINOPHEN [Concomitant]
     Active Substance: ACETAMINOPHEN
  7. DIPHENHYDRAMINE [Concomitant]
     Active Substance: DIPHENHYDRAMINE
     Dosage: UNK
  8. FAMOTIDINE [Concomitant]
     Active Substance: FAMOTIDINE
     Route: 065
  9. KETOROLAC TROMETHAMINE [Concomitant]
     Active Substance: KETOROLAC TROMETHAMINE
     Route: 065
  10. LIDOCAINE [Concomitant]
     Active Substance: LIDOCAINE
     Route: 065
  11. SODIUM CHLORIDE [Concomitant]
     Active Substance: SODIUM CHLORIDE
     Route: 065
  12. SODIUM CHLORIDE [Concomitant]
     Active Substance: SODIUM CHLORIDE
     Route: 065
  13. ONDANSETRON [Concomitant]
     Active Substance: ONDANSETRON
  14. EPINEPHRINE [Concomitant]
     Active Substance: EPINEPHRINE
  15. TRELEGY ELLIPTA [Concomitant]
     Active Substance: FLUTICASONE FUROATE\UMECLIDINIUM BROMIDE\VILANTEROL TRIFENATATE
  16. OMEPRAZOLE [Concomitant]
     Active Substance: OMEPRAZOLE
  17. SOLU-MEDROL [Concomitant]
     Active Substance: METHYLPREDNISOLONE SODIUM SUCCINATE
     Route: 065
  18. AMLODIPINE BESYLATE [Concomitant]
     Active Substance: AMLODIPINE BESYLATE
  19. LANTUS [Concomitant]
     Active Substance: INSULIN GLARGINE
  20. LYRICA [Concomitant]
     Active Substance: PREGABALIN
  21. TIZANIDINE [Concomitant]
     Active Substance: TIZANIDINE
  22. LINZESS [Concomitant]
     Active Substance: LINACLOTIDE
  23. ROSUVASTATIN [Concomitant]
     Active Substance: ROSUVASTATIN
  24. MONTELUKAST [Concomitant]
     Active Substance: MONTELUKAST SODIUM
  25. VITAMIN D2 [Concomitant]
     Active Substance: ERGOCALCIFEROL
  26. PROAIR HFA [Concomitant]
     Active Substance: ALBUTEROL SULFATE
  27. TEMAZEPAM [Concomitant]
     Active Substance: TEMAZEPAM
  28. TOPROL XL [Concomitant]
     Active Substance: METOPROLOL SUCCINATE
  29. XHANCE [Concomitant]
     Active Substance: FLUTICASONE PROPIONATE
  30. TOPROL XL [Concomitant]
     Active Substance: METOPROLOL SUCCINATE
     Route: 065
  31. VITAMIN D [Concomitant]
     Active Substance: VITAMIN D NOS
     Route: 065
  32. Lmx [Concomitant]
  33. MAGNESIUM [Concomitant]
     Active Substance: MAGNESIUM

REACTIONS (12)
  - Pneumonia [Unknown]
  - Ear infection [Recovered/Resolved]
  - Illness [Unknown]
  - Injury associated with device [Unknown]
  - Infusion related reaction [Unknown]
  - Pyrexia [Recovered/Resolved]
  - Injection site pain [Unknown]
  - Infusion site pruritus [Unknown]
  - Infusion site erythema [Unknown]
  - Nausea [Unknown]
  - Off label use [Unknown]
  - Product dose omission issue [Unknown]

NARRATIVE: CASE EVENT DATE: 20210901
